FAERS Safety Report 9997021 (Version 1)
Quarter: 2014Q1

REPORT INFORMATION
  Report Type: Spontaneous
  Country: US (occurrence: US)
  Receive Date: 20140311
  Receipt Date: 20140311
  Transmission Date: 20141002
  Serious: No
  Sender: FDA-Public Use
  Company Number: US-GLAXOSMITHKLINE-A1014300A

PATIENT
  Sex: Female

DRUGS (5)
  1. NICORETTE WHITE ICE OTC 2MG [Suspect]
     Indication: EX-TOBACCO USER
  2. NICODERM CQ 14MG [Suspect]
     Indication: PRODUCT USED FOR UNKNOWN INDICATION
     Dates: start: 20130301
  3. WALGREENS NICOTINE TRANSDERMAL SYSTEM PATCH CLEAR, 14MG [Suspect]
     Indication: PRODUCT USED FOR UNKNOWN INDICATION
  4. NICORETTE OTC 2MG [Suspect]
     Indication: PRODUCT USED FOR UNKNOWN INDICATION
  5. NICORETTE OTC 4MG [Suspect]
     Indication: PRODUCT USED FOR UNKNOWN INDICATION

REACTIONS (2)
  - Nicotine dependence [Not Recovered/Not Resolved]
  - Drug administration error [Unknown]
